FAERS Safety Report 14147001 (Version 2)
Quarter: 2017Q4

REPORT INFORMATION
  Report Type: Report from Study
  Country: GB (occurrence: GB)
  Receive Date: 20171031
  Receipt Date: 20171225
  Transmission Date: 20180321
  Serious: Yes (Hospitalization)
  Sender: FDA-Public Use
  Company Number: GB-ASTRAZENECA-2017SF10454

PATIENT
  Age: 25787 Day
  Sex: Male
  Weight: 86.2 kg

DRUGS (9)
  1. OLAPARIB. [Suspect]
     Active Substance: OLAPARIB
     Indication: NEOPLASM
     Route: 048
     Dates: start: 20171024, end: 20171026
  2. OMEPRAZOLE. [Concomitant]
     Active Substance: OMEPRAZOLE
     Indication: UPPER GASTROINTESTINAL HAEMORRHAGE
     Route: 048
     Dates: start: 201702
  3. DOMPERIDONE [Concomitant]
     Active Substance: DOMPERIDONE
     Indication: NAUSEA
     Dosage: 10.0ML AS REQUIRED
     Route: 048
     Dates: start: 20171018
  4. ZOMORPH [Concomitant]
     Active Substance: MORPHINE SULFATE
     Indication: ABDOMINAL PAIN
     Route: 048
     Dates: start: 20171017
  5. LACTULOSE. [Concomitant]
     Active Substance: LACTULOSE
     Indication: CONSTIPATION
     Dosage: 10.0ML AS REQUIRED
     Route: 048
     Dates: start: 20171018
  6. ORAMORPH [Concomitant]
     Active Substance: MORPHINE SULFATE
     Indication: ABDOMINAL PAIN
     Dosage: 5.0MG AS REQUIRED
     Route: 048
     Dates: start: 20171009
  7. AZD6738 [Suspect]
     Active Substance: INVESTIGATIONAL PRODUCT
     Indication: NEOPLASM
     Route: 048
     Dates: start: 20171017, end: 20171023
  8. OLAPARIB. [Suspect]
     Active Substance: OLAPARIB
     Indication: NEOPLASM
     Route: 048
     Dates: start: 20171030, end: 20171108
  9. DALTEPARIN [Concomitant]
     Active Substance: DALTEPARIN
     Indication: DEEP VEIN THROMBOSIS
     Dosage: 1800 UNITS DAILY
     Route: 058
     Dates: start: 20171008

REACTIONS (1)
  - Vestibular neuronitis [Recovered/Resolved]

NARRATIVE: CASE EVENT DATE: 20171027
